FAERS Safety Report 9398252 (Version 2)
Quarter: 2013Q3

REPORT INFORMATION
  Report Type: Spontaneous
  Country: US (occurrence: US)
  Receive Date: 20130712
  Receipt Date: 20130801
  Transmission Date: 20140515
  Serious: Yes (Hospitalization, Other)
  Sender: FDA-Public Use
  Company Number: US-JNJFOC-20130705430

PATIENT
  Age: 35 Year
  Sex: Male

DRUGS (1)
  1. ULTRAM [Suspect]
     Indication: PAIN
     Route: 048
     Dates: end: 20130707

REACTIONS (2)
  - Overdose [Unknown]
  - Blood creatinine increased [Not Recovered/Not Resolved]
